FAERS Safety Report 14652400 (Version 1)
Quarter: 2018Q1

REPORT INFORMATION
  Report Type: Spontaneous
  Country: US (occurrence: US)
  Receive Date: 20180318
  Receipt Date: 20180318
  Transmission Date: 20180509
  Serious: No
  Sender: FDA-Public Use
  Company Number: US-FDC LIMITED-2017RIS00137

PATIENT
  Age: 2 Year
  Sex: Male
  Weight: 12.7 kg

DRUGS (2)
  1. UNSPECIFIED ACID REFLUX MEDICATION [Concomitant]
  2. OFLOXACIN. [Suspect]
     Active Substance: OFLOXACIN
     Indication: EAR INFECTION
     Dosage: UNK UNK, 2X/DAY
     Route: 001
     Dates: start: 201706

REACTIONS (2)
  - Ear discomfort [Recovered/Resolved]
  - Off label use [Unknown]

NARRATIVE: CASE EVENT DATE: 201706
